FAERS Safety Report 6034509-4 (Version None)
Quarter: 2009Q1

REPORT INFORMATION
  Report Type: 
  Country: None (occurrence: None)
  Receive Date: 20090112
  Receipt Date: 20090106
  Transmission Date: 20090719
  Serious: Yes (Other)
  Sender: FDA-Public Use
  Company Number: US-ELI_LILLY_AND_COMPANY-US200811001005

PATIENT
  Sex: Female

DRUGS (1)
  1. HUMALOG [Suspect]
     Dosage: UNK, UNK

REACTIONS (7)
  - BLINDNESS UNILATERAL [None]
  - DIABETIC RETINOPATHY [None]
  - GLAUCOMA [None]
  - LEG AMPUTATION [None]
  - OPTIC ATROPHY [None]
  - VISUAL ACUITY REDUCED [None]
  - VISUAL FIELD DEFECT [None]
